FAERS Safety Report 19053140 (Version 1)
Quarter: 2021Q1

REPORT INFORMATION
  Report Type: Spontaneous
  Country: US (occurrence: US)
  Receive Date: 20210324
  Receipt Date: 20210324
  Transmission Date: 20210420
  Serious: Yes (Other)
  Sender: FDA-Public Use
  Company Number: US-ABBVIE-21K-163-3820949-00

PATIENT
  Sex: Female

DRUGS (5)
  1. XELJANZ XR [Suspect]
     Active Substance: TOFACITINIB CITRATE
     Dosage: MISSED DOSE COUPLE OF TIMES DUE TO SINUS INFECTION
     Route: 048
  2. ENBREL [Suspect]
     Active Substance: ETANERCEPT
     Indication: PRODUCT USED FOR UNKNOWN INDICATION
     Route: 065
  3. HUMIRA [Suspect]
     Active Substance: ADALIMUMAB
     Indication: PRODUCT USED FOR UNKNOWN INDICATION
     Route: 058
     Dates: end: 202011
  4. XELJANZ XR [Suspect]
     Active Substance: TOFACITINIB CITRATE
     Route: 048
  5. XELJANZ XR [Suspect]
     Active Substance: TOFACITINIB CITRATE
     Indication: RHEUMATOID ARTHRITIS
     Route: 048
     Dates: start: 20200128, end: 202011

REACTIONS (10)
  - Drug ineffective [Unknown]
  - Ageusia [Unknown]
  - Abdominal pain [Unknown]
  - Anxiety [Unknown]
  - Anaphylactic shock [Unknown]
  - Pain in extremity [Unknown]
  - Anosmia [Unknown]
  - Therapeutic product effect decreased [Unknown]
  - Sinusitis [Recovered/Resolved]
  - Food allergy [Unknown]
